FAERS Safety Report 9817836 (Version 2)
Quarter: 2014Q1

REPORT INFORMATION
  Report Type: Report from Study
  Country: JP (occurrence: JP)
  Receive Date: 20140115
  Receipt Date: 20140219
  Transmission Date: 20141002
  Serious: Yes (Hospitalization)
  Sender: FDA-Public Use
  Company Number: JP-ROCHE-1331253

PATIENT
  Age: 80 Year
  Sex: Male

DRUGS (10)
  1. METHOXY POLYETHYLENE GLYCOL-EPOETIN BETA [Suspect]
     Indication: NEPHROGENIC ANAEMIA
     Route: 058
     Dates: start: 20130312, end: 20130507
  2. METHOXY POLYETHYLENE GLYCOL-EPOETIN BETA [Suspect]
     Route: 058
     Dates: start: 20130702
  3. ENALAPRIL MALEATE [Concomitant]
     Route: 048
     Dates: end: 20130408
  4. ENALAPRIL MALEATE [Concomitant]
     Route: 048
     Dates: start: 20130409, end: 20130523
  5. PLETAAL [Concomitant]
     Indication: PROPHYLAXIS
     Route: 048
  6. FEBURIC [Concomitant]
     Route: 048
     Dates: end: 20130523
  7. TAKEPRON [Concomitant]
     Indication: PROPHYLAXIS
     Route: 048
     Dates: start: 20130524
  8. AMLODIPINE [Concomitant]
     Route: 048
     Dates: start: 20130524
  9. ALCENOL [Concomitant]
     Route: 048
     Dates: start: 20130524
  10. CARDENALIN [Concomitant]
     Route: 048
     Dates: start: 20130524

REACTIONS (2)
  - Aortic dissection [Recovering/Resolving]
  - Femoral artery aneurysm [Recovered/Resolved]
